FAERS Safety Report 16968492 (Version 1)
Quarter: 2019Q4

REPORT INFORMATION
  Report Type: Spontaneous
  Country: PL (occurrence: PL)
  Receive Date: 20191029
  Receipt Date: 20191029
  Transmission Date: 20200122
  Serious: Yes (Hospitalization, Other)
  Sender: FDA-Public Use
  Company Number: PL-ABBVIE-19K-129-2973808-00

PATIENT
  Age: 52 Year
  Sex: Male

DRUGS (7)
  1. VENCLYXTO [Suspect]
     Active Substance: VENETOCLAX
     Route: 048
  2. VENCLYXTO [Suspect]
     Active Substance: VENETOCLAX
     Route: 048
  3. VENCLYXTO [Suspect]
     Active Substance: VENETOCLAX
     Indication: CHRONIC LYMPHOCYTIC LEUKAEMIA
     Route: 048
  4. ALLOPURINOL. [Concomitant]
     Active Substance: ALLOPURINOL
  5. VENCLYXTO [Suspect]
     Active Substance: VENETOCLAX
     Route: 048
  6. VENCLYXTO [Suspect]
     Active Substance: VENETOCLAX
     Route: 048
  7. ALLOPURINOL. [Concomitant]
     Active Substance: ALLOPURINOL
     Indication: PRODUCT USED FOR UNKNOWN INDICATION

REACTIONS (5)
  - Dysuria [Unknown]
  - Abdominal distension [Unknown]
  - Peripheral swelling [Recovering/Resolving]
  - Lymphadenopathy [Recovering/Resolving]
  - Disease susceptibility [Unknown]

NARRATIVE: CASE EVENT DATE: 201910
